FAERS Safety Report 19791207 (Version 1)
Quarter: 2021Q3

REPORT INFORMATION
  Report Type: Spontaneous
  Country: US (occurrence: US)
  Receive Date: 20210906
  Receipt Date: 20210906
  Transmission Date: 20211014
  Serious: Yes (Death, Life-Threatening, Other)
  Sender: FDA-Public Use
  Company Number: US-AMGEN-USASP2021134260

PATIENT

DRUGS (3)
  1. AZACITIDINE. [Suspect]
     Active Substance: AZACITIDINE
     Indication: MYELODYSPLASTIC SYNDROME
     Dosage: 75 MILLIGRAM/SQ. METER
     Route: 058
  2. FILGRASTIM [Suspect]
     Active Substance: FILGRASTIM
     Indication: MYELODYSPLASTIC SYNDROME
     Dosage: UNK
     Route: 058
  3. PLERIXAFOR [Suspect]
     Active Substance: PLERIXAFOR
     Indication: MYELODYSPLASTIC SYNDROME
     Dosage: UNK
     Route: 058

REACTIONS (38)
  - Lymphopenia [Unknown]
  - Thrombocytopenia [Unknown]
  - Sepsis [Fatal]
  - Hyponatraemia [Unknown]
  - Syncope [Unknown]
  - Hypoxia [Unknown]
  - Therapy non-responder [Unknown]
  - Oedema [Unknown]
  - Asthenia [Unknown]
  - Hypokalaemia [Unknown]
  - Clostridium difficile colitis [Unknown]
  - Constipation [Unknown]
  - Hypophosphataemia [Unknown]
  - Neutropenia [Unknown]
  - Hypertension [Unknown]
  - Headache [Unknown]
  - Diarrhoea [Unknown]
  - Injection site reaction [Unknown]
  - Pneumonia [Unknown]
  - Cellulitis [Unknown]
  - Anaemia [Unknown]
  - Atrial fibrillation [Unknown]
  - Respiratory failure [Fatal]
  - Sinusitis [Unknown]
  - Acute kidney injury [Unknown]
  - Fatigue [Unknown]
  - Dyspnoea [Unknown]
  - Leukocytosis [Recovered/Resolved]
  - Leukostasis syndrome [Recovered/Resolved]
  - Disease progression [Unknown]
  - Hypotension [Unknown]
  - Dizziness [Unknown]
  - Ejection fraction decreased [Unknown]
  - Urinary tract infection [Unknown]
  - Nausea [Unknown]
  - Febrile neutropenia [Unknown]
  - Leukopenia [Unknown]
  - Thrombocytosis [Unknown]
